FAERS Safety Report 6084213-1 (Version None)
Quarter: 2009Q1

REPORT INFORMATION
  Report Type: 
  Country: None (occurrence: None)
  Receive Date: 20090219
  Receipt Date: 20090209
  Transmission Date: 20090719
  Serious: Yes (Hospitalization)
  Sender: FDA-Public Use
  Company Number: US-ABBOTT-09P-163-0502369-00

PATIENT
  Sex: Male
  Weight: 106.69 kg

DRUGS (5)
  1. HUMIRA [Suspect]
     Indication: CROHN'S DISEASE
     Route: 058
     Dates: start: 20061101
  2. METHOTREXATE [Concomitant]
     Indication: CROHN'S DISEASE
     Route: 058
  3. FOLIC ACID [Concomitant]
     Indication: VITAMIN SUPPLEMENTATION
     Route: 048
  4. BENICAR [Concomitant]
     Indication: HYPERTENSION
     Route: 050
  5. PROTONIX [Concomitant]
     Indication: BARRETT'S OESOPHAGUS
     Route: 048

REACTIONS (3)
  - INTERVERTEBRAL DISC PROTRUSION [None]
  - PAIN [None]
  - UPPER RESPIRATORY TRACT INFECTION [None]
